FAERS Safety Report 21566101 (Version 2)
Quarter: 2022Q4

REPORT INFORMATION
  Report Type: Spontaneous
  Country: US (occurrence: US)
  Receive Date: 20221108
  Receipt Date: 20221129
  Transmission Date: 20230113
  Serious: No
  Sender: FDA-Public Use
  Company Number: ae021US22

PATIENT
  Age: 62 Year
  Sex: Female

DRUGS (7)
  1. ASCLERA [Suspect]
     Active Substance: POLIDOCANOL
     Indication: Spider vein
     Route: 065
     Dates: start: 20220402, end: 20220402
  2. ASCLERA [Suspect]
     Active Substance: POLIDOCANOL
     Indication: Spider vein
     Dates: start: 20220402, end: 20220402
  3. ASCLERA [Suspect]
     Active Substance: POLIDOCANOL
     Indication: Spider vein
     Dates: start: 20220416, end: 20220416
  4. ASCLERA [Suspect]
     Active Substance: POLIDOCANOL
     Indication: Spider vein
     Dates: start: 20220529, end: 20220529
  5. SILDENAFIL [Concomitant]
     Active Substance: SILDENAFIL
     Indication: Product used for unknown indication
  6. AMBRISENTAN [Concomitant]
     Active Substance: AMBRISENTAN
     Indication: Product used for unknown indication
  7. Dermaka [Concomitant]

REACTIONS (2)
  - Skin hyperpigmentation [Unknown]
  - Injection site discolouration [Unknown]
